FAERS Safety Report 11825252 (Version 3)
Quarter: 2016Q1

REPORT INFORMATION
  Report Type: Spontaneous
  Country: IT (occurrence: IT)
  Receive Date: 20151211
  Receipt Date: 20160115
  Transmission Date: 20160525
  Serious: Yes (Death)
  Sender: FDA-Public Use
  Company Number: IT-BEH-2015056776

PATIENT
  Age: 77 Year
  Sex: Male

DRUGS (5)
  1. INTRAVENOUS IMMUNOGLOBULIN [Suspect]
     Active Substance: HUMAN IMMUNOGLOBULIN G
     Indication: CHRONIC LYMPHOCYTIC LEUKAEMIA
  2. INTRAVENOUS IMMUNOGLOBULIN [Suspect]
     Active Substance: HUMAN IMMUNOGLOBULIN G
     Indication: HISTIOCYTOSIS HAEMATOPHAGIC
  3. DEXAMETHASONE. [Suspect]
     Active Substance: DEXAMETHASONE
  4. TOCILIZUMAB [Suspect]
     Active Substance: TOCILIZUMAB
  5. CYCLOSPORIN A [Suspect]
     Active Substance: CYCLOSPORINE

REACTIONS (3)
  - Drug ineffective [Fatal]
  - Multiple organ dysfunction syndrome [Fatal]
  - Haemorrhage [Fatal]
